FAERS Safety Report 9344196 (Version 3)
Quarter: 2013Q3

REPORT INFORMATION
  Report Type: Spontaneous
  Country: US (occurrence: None)
  Receive Date: 20130610
  Receipt Date: 20130724
  Transmission Date: 20140515
  Serious: Yes (Life-Threatening, Hospitalization, Other)
  Sender: FDA-Public Use
  Company Number: ADR-2013-00961

PATIENT
  Age: 20 Year
  Sex: Male

DRUGS (1)
  1. LIORESAL INTRATHECAL (BACLOFEN INJECTION) 500 MCG/ML [Suspect]
     Dosage: 566 MCG/DAY

REACTIONS (8)
  - Hypersensitivity [None]
  - Medical device site reaction [None]
  - Wound dehiscence [None]
  - Overdose [None]
  - Respiratory depression [None]
  - Hypotonia [None]
  - Medical device complication [None]
  - Infection [None]
